FAERS Safety Report 5813319-4 (Version None)
Quarter: 2008Q3

REPORT INFORMATION
  Report Type: 
  Country: None (occurrence: None)
  Receive Date: 20080717
  Receipt Date: 20080716
  Transmission Date: 20090109
  Serious: Yes (Other)
  Sender: FDA-Public Use
  Company Number: A0737829A

PATIENT
  Age: 65 Year
  Sex: Female

DRUGS (2)
  1. NICODERM CQ [Suspect]
     Indication: SMOKING CESSATION THERAPY
     Route: 062
     Dates: start: 20080703, end: 20080713
  2. NICODERM CQ [Suspect]
     Indication: SMOKING CESSATION THERAPY
     Route: 062
     Dates: start: 20080714, end: 20080715

REACTIONS (9)
  - APPLICATION SITE PAPULES [None]
  - APPLICATION SITE SWELLING [None]
  - ASTHENIA [None]
  - HEART RATE INCREASED [None]
  - INTENTIONAL DRUG MISUSE [None]
  - NAUSEA [None]
  - NICOTINE POISONING [None]
  - TREMOR [None]
  - VOMITING [None]
